FAERS Safety Report 4798403-9 (Version None)
Quarter: 2005Q4

REPORT INFORMATION
  Report Type: 
  Country: None (occurrence: None)
  Receive Date: 20051014
  Receipt Date: 20050607
  Transmission Date: 20060501
  Serious: Yes (Hospitalization)
  Sender: FDA-Public Use
  Company Number: PHHO2005US09055

PATIENT
  Age: 59 Year
  Sex: Male
  Weight: 91 kg

DRUGS (15)
  1. GLEEVEC [Suspect]
     Indication: METASTATIC RENAL CELL CARCINOMA
     Dosage: 400 MG, QD
     Route: 048
     Dates: start: 20050203, end: 20050424
  2. TARCEVA [Suspect]
     Indication: METASTATIC RENAL CELL CARCINOMA
     Dosage: 150 MG, QD
     Route: 048
     Dates: start: 20050203, end: 20050424
  3. AVASTIN [Suspect]
     Indication: METASTATIC RENAL CELL CARCINOMA
     Dosage: 945MG
     Route: 042
     Dates: start: 20050203, end: 20050412
  4. BENADRYL [Concomitant]
     Indication: PRURITUS
  5. LIPITOR [Concomitant]
     Indication: HYPERCHOLESTEROLAEMIA
  6. NEXIUM [Concomitant]
  7. LORTAB [Concomitant]
     Indication: PAIN
  8. CARDIZEM [Concomitant]
  9. ALLOPURINOL [Concomitant]
     Indication: HYPERURICAEMIA
  10. SWEEN CREAM [Concomitant]
     Indication: RASH
  11. GAS-X [Concomitant]
     Indication: FLATULENCE
  12. PHENERGAN [Concomitant]
     Indication: NAUSEA
  13. GOLD BOND [Concomitant]
     Indication: RASH
  14. IMODIUM [Concomitant]
     Indication: DIARRHOEA
  15. ALTACE [Concomitant]

REACTIONS (8)
  - ANOREXIA [None]
  - BLOOD CREATININE INCREASED [None]
  - DEHYDRATION [None]
  - DIARRHOEA [None]
  - NAUSEA [None]
  - RENAL FAILURE ACUTE [None]
  - SKIN CANDIDA [None]
  - URINARY TRACT INFECTION [None]
